FAERS Safety Report 16223500 (Version 1)
Quarter: 2019Q2

REPORT INFORMATION
  Report Type: Spontaneous
  Country: US (occurrence: US)
  Receive Date: 20190422
  Receipt Date: 20190422
  Transmission Date: 20190711
  Serious: Yes (Hospitalization, Other)
  Sender: FDA-Public Use
  Company Number: US-MYLANLABS-2019M1036852

PATIENT
  Age: 32 Year

DRUGS (1)
  1. TIZANIDINE. [Suspect]
     Active Substance: TIZANIDINE
     Indication: DRUG WITHDRAWAL SYNDROME
     Dosage: THE WOMAN HAD TAKEN BETWEEN 20 AND 30 TABLETS OF 4MG TIZANIDINE, TOTALLING 80-120 MG.
     Route: 065

REACTIONS (6)
  - Drug abuse [Unknown]
  - Hypotension [Unknown]
  - Shock [Recovering/Resolving]
  - Self-medication [Unknown]
  - Intentional overdose [Unknown]
  - Bradycardia [Unknown]
